FAERS Safety Report 24361998 (Version 1)
Quarter: 2024Q3

REPORT INFORMATION
  Report Type: Spontaneous
  Country: DE (occurrence: DE)
  Receive Date: 20240925
  Receipt Date: 20240925
  Transmission Date: 20241016
  Serious: Yes (Hospitalization, Other)
  Sender: BRISTOL MYERS SQUIBB
  Company Number: DE-BRISTOL-MYERS SQUIBB COMPANY-2024-149704

PATIENT
  Age: 59 Year
  Sex: Male

DRUGS (23)
  1. POMALIDOMIDE [Suspect]
     Active Substance: POMALIDOMIDE
     Indication: Plasma cell myeloma
     Dates: start: 201403
  2. POMALIDOMIDE [Suspect]
     Active Substance: POMALIDOMIDE
     Dates: start: 201407, end: 201505
  3. POMALIDOMIDE [Suspect]
     Active Substance: POMALIDOMIDE
     Dates: start: 20160806
  4. POMALIDOMIDE [Suspect]
     Active Substance: POMALIDOMIDE
     Dates: start: 201901
  5. POMALIDOMIDE [Suspect]
     Active Substance: POMALIDOMIDE
     Dates: start: 202108
  6. POMALIDOMIDE [Suspect]
     Active Substance: POMALIDOMIDE
     Dates: start: 202111
  7. BORTEZOMIB [Suspect]
     Active Substance: BORTEZOMIB
     Indication: Plasma cell myeloma
     Dates: start: 201610, end: 201706
  8. BORTEZOMIB [Suspect]
     Active Substance: BORTEZOMIB
     Dates: start: 201804
  9. BORTEZOMIB [Suspect]
     Active Substance: BORTEZOMIB
     Dates: start: 202108
  10. BORTEZOMIB [Suspect]
     Active Substance: BORTEZOMIB
     Dates: start: 202111
  11. ADRIAMYCIN [Suspect]
     Active Substance: DOXORUBICIN HYDROCHLORIDE
     Indication: Plasma cell myeloma
  12. DEXAMETHASONE [Suspect]
     Active Substance: DEXAMETHASONE
     Indication: Plasma cell myeloma
     Dates: start: 201111, end: 201305
  13. DEXAMETHASONE [Suspect]
     Active Substance: DEXAMETHASONE
     Dates: start: 202403
  14. DEXAMETHASONE [Suspect]
     Active Substance: DEXAMETHASONE
     Dates: start: 201407, end: 201505
  15. DEXAMETHASONE [Suspect]
     Active Substance: DEXAMETHASONE
     Dates: start: 20160806
  16. DEXAMETHASONE [Suspect]
     Active Substance: DEXAMETHASONE
     Dates: start: 201610, end: 201706
  17. DEXAMETHASONE [Suspect]
     Active Substance: DEXAMETHASONE
     Dates: start: 20190409
  18. DEXAMETHASONE [Suspect]
     Active Substance: DEXAMETHASONE
     Dates: start: 202101
  19. DEXAMETHASONE [Suspect]
     Active Substance: DEXAMETHASONE
     Dates: start: 202108
  20. DEXAMETHASONE [Suspect]
     Active Substance: DEXAMETHASONE
     Dates: start: 202111
  21. DEXAMETHASONE [Suspect]
     Active Substance: DEXAMETHASONE
     Dates: start: 202206
  22. DEXAMETHASONE [Suspect]
     Active Substance: DEXAMETHASONE
     Dates: start: 202308
  23. DEXAMETHASONE [Suspect]
     Active Substance: DEXAMETHASONE
     Dates: start: 200409, end: 200411

REACTIONS (2)
  - Osteonecrosis of jaw [Unknown]
  - Paraproteinaemia [Unknown]

NARRATIVE: CASE EVENT DATE: 20211201
